FAERS Safety Report 4455447-4 (Version None)
Quarter: 2004Q3

REPORT INFORMATION
  Report Type: 
  Country: None (occurrence: None)
  Receive Date: 20040917
  Receipt Date: 20040902
  Transmission Date: 20050211
  Serious: Yes (Other)
  Sender: FDA-Public Use
  Company Number: 2004-0007473

PATIENT
  Sex: Male

DRUGS (3)
  1. VIREAD [Suspect]
     Indication: HIV INFECTION
  2. LAMIVUDINE (LAMIVUDINE) [Concomitant]
  3. NEVIRAPINE (NEVIRAPINE) [Concomitant]

REACTIONS (2)
  - BLOOD PHOSPHORUS DECREASED [None]
  - BONE SWELLING [None]
